FAERS Safety Report 4337085-7 (Version None)
Quarter: 2004Q2

REPORT INFORMATION
  Report Type: 
  Country: None (occurrence: None)
  Receive Date: 20040407
  Receipt Date: 20040401
  Transmission Date: 20050107
  Serious: Yes (Other)
  Sender: FDA-Public Use
  Company Number: 200403585

PATIENT
  Sex: Female

DRUGS (1)
  1. UNSPECIFIED CYCLOBENZAPRINE PRODUCT [Suspect]
     Dosage: 10 MG PO
     Route: 048

REACTIONS (4)
  - FALL [None]
  - FRACTURE [None]
  - NECK INJURY [None]
  - TREMOR [None]
